FAERS Safety Report 16359382 (Version 2)
Quarter: 2019Q2

REPORT INFORMATION
  Report Type: Spontaneous
  Country: JP (occurrence: JP)
  Receive Date: 20190528
  Receipt Date: 20190619
  Transmission Date: 20190711
  Serious: Yes (Hospitalization, Other)
  Sender: FDA-Public Use
  Company Number: JP-AMGEN-JPNSP2019083221

PATIENT
  Age: 84 Year
  Sex: Female

DRUGS (16)
  1. MICARDIS [Concomitant]
     Active Substance: TELMISARTAN
     Dosage: UNK
     Route: 048
  2. MUCODYNE [Concomitant]
     Active Substance: CARBOCYSTEINE
     Dosage: UNK
     Route: 048
  3. EBRANTIL [Concomitant]
     Active Substance: URAPIDIL
     Dosage: UNK
     Route: 048
  4. PRALIA [Suspect]
     Active Substance: DENOSUMAB
     Indication: OSTEOPOROSIS
     Dosage: 60 MILLIGRAM, Q6MO
     Route: 058
  5. BISONO [Concomitant]
     Active Substance: BISOPROLOL
     Dosage: UNK
     Route: 062
  6. NORVASC [Concomitant]
     Active Substance: AMLODIPINE BESYLATE
     Dosage: UNK
     Route: 048
  7. MAGNESIUM OXIDE. [Concomitant]
     Active Substance: MAGNESIUM OXIDE
     Dosage: UNK
     Route: 048
  8. SENNOSIDE [Concomitant]
     Active Substance: SENNOSIDES
     Dosage: UNK
     Route: 048
  9. TERIPARATIDE [Concomitant]
     Active Substance: TERIPARATIDE
     Dosage: UNK
     Route: 065
  10. NEXIUM [Concomitant]
     Active Substance: ESOMEPRAZOLE MAGNESIUM
     Dosage: UNK
     Route: 048
  11. EDIROL [Suspect]
     Active Substance: ELDECALCITOL
     Indication: PRODUCT USED FOR UNKNOWN INDICATION
     Dosage: UNK
     Route: 048
  12. DIART [Concomitant]
     Active Substance: AZOSEMIDE
     Dosage: UNK
     Route: 048
  13. DEPAS [Concomitant]
     Dosage: UNK
     Route: 048
  14. WARFARIN [Concomitant]
     Active Substance: WARFARIN
     Dosage: UNK
     Route: 048
  15. EXELON [Concomitant]
     Active Substance: RIVASTIGMINE TARTRATE
     Dosage: UNK
     Route: 060
  16. BETANIS [Concomitant]
     Active Substance: MIRABEGRON
     Dosage: UNK
     Route: 048

REACTIONS (2)
  - Cardiac failure [Unknown]
  - Hypercalcaemia [Unknown]
